FAERS Safety Report 13876331 (Version 2)
Quarter: 2017Q3

REPORT INFORMATION
  Report Type: Spontaneous
  Country: US (occurrence: US)
  Receive Date: 20170817
  Receipt Date: 20170906
  Transmission Date: 20171127
  Serious: Yes (Other)
  Sender: FDA-Public Use
  Company Number: US-TAKEDA-2017TUS016927

PATIENT
  Sex: Female
  Weight: 107.94 kg

DRUGS (6)
  1. LOSARTAN. [Concomitant]
     Active Substance: LOSARTAN
     Indication: BLOOD PRESSURE MEASUREMENT
     Dosage: 50 MG, QD
     Route: 065
     Dates: start: 2017
  2. FUROSEMIDE. [Concomitant]
     Active Substance: FUROSEMIDE
     Indication: OEDEMA
     Dosage: 80 MG, BID
     Route: 065
     Dates: start: 2017
  3. COREG [Concomitant]
     Active Substance: CARVEDILOL
     Indication: BLOOD PRESSURE MEASUREMENT
     Dosage: 6.25 MG, BID
     Route: 065
     Dates: start: 2014
  4. METOLAZONE. [Concomitant]
     Active Substance: METOLAZONE
     Indication: OEDEMA
     Dosage: 2.5 MG, 3/WEEK
     Route: 065
     Dates: start: 2017
  5. ULORIC [Suspect]
     Active Substance: FEBUXOSTAT
     Indication: HYPERURICAEMIA
     Dosage: 40 MG, QD
     Route: 048
     Dates: start: 20170601
  6. AMLODIPINE [Concomitant]
     Active Substance: AMLODIPINE BESYLATE
     Dosage: 10 MG, UNK
     Route: 065
     Dates: start: 2014

REACTIONS (1)
  - Drug reaction with eosinophilia and systemic symptoms [Unknown]
